FAERS Safety Report 18116529 (Version 2)
Quarter: 2020Q3

REPORT INFORMATION
  Report Type: Report from Study
  Country: US (occurrence: US)
  Receive Date: 20200805
  Receipt Date: 20200925
  Transmission Date: 20201103
  Serious: Yes (Hospitalization)
  Sender: FDA-Public Use
  Company Number: US-AGIOS-2007US02064

PATIENT

DRUGS (1)
  1. TIBSOVO [Suspect]
     Active Substance: IVOSIDENIB
     Indication: BRAIN NEOPLASM MALIGNANT
     Dosage: 250 MG, 2 TABLETS (500 MG), QD
     Route: 048

REACTIONS (3)
  - Off label use [Recovered/Resolved]
  - Headache [Recovering/Resolving]
  - Disease progression [Recovering/Resolving]
